FAERS Safety Report 16383634 (Version 1)
Quarter: 2019Q3

REPORT INFORMATION
  Report Type: Spontaneous
  Country: US (occurrence: US)
  Receive Date: 20190531
  Receipt Date: 20190531
  Transmission Date: 20191004
  Serious: Yes (Life-Threatening, Hospitalization)
  Sender: FDA-Public Use
  Company Number: None

PATIENT
  Age: 66 Year
  Sex: Female

DRUGS (1)
  1. LOSARTAN. [Suspect]
     Active Substance: LOSARTAN
     Indication: HYPERTENSION
     Route: 048
     Dates: start: 20170724, end: 20190223

REACTIONS (5)
  - Blood pressure increased [None]
  - Gingival bleeding [None]
  - Thrombocytopenia [None]
  - Petechiae [None]
  - Contusion [None]

NARRATIVE: CASE EVENT DATE: 20190223
